FAERS Safety Report 14153257 (Version 2)
Quarter: 2018Q1

REPORT INFORMATION
  Report Type: Spontaneous
  Country: BN (occurrence: BN)
  Receive Date: 20171102
  Receipt Date: 20180202
  Transmission Date: 20180508
  Serious: Yes (Death, Hospitalization)
  Sender: FDA-Public Use
  Company Number: PHHY2017BN156807

PATIENT
  Age: 64 Year
  Sex: Female
  Weight: 51 kg

DRUGS (3)
  1. DENOSUMAB [Concomitant]
     Active Substance: DENOSUMAB
     Indication: METASTASES TO BONE
     Dosage: 120 MG, Q4W
     Route: 058
     Dates: start: 20171004, end: 20171023
  2. KISQALI [Suspect]
     Active Substance: RIBOCICLIB
     Indication: BREAST CANCER METASTATIC
     Dosage: 600 MG, FOR  21 DAYS FOR 28 DAYS
     Route: 048
     Dates: start: 20171004, end: 20171023
  3. LETROZOLE. [Suspect]
     Active Substance: LETROZOLE
     Indication: BREAST CANCER METASTATIC
     Dosage: UNK
     Route: 065
     Dates: start: 20171004

REACTIONS (5)
  - Sepsis [Fatal]
  - Thrombocytopenia [Fatal]
  - Hypocalcaemia [Fatal]
  - Pulmonary embolism [Fatal]
  - Neutropenia [Fatal]

NARRATIVE: CASE EVENT DATE: 20171022
